FAERS Safety Report 9308955 (Version 2)
Quarter: 2013Q2

REPORT INFORMATION
  Report Type: Spontaneous
  Country: JP (occurrence: JP)
  Receive Date: 20130524
  Receipt Date: 20130605
  Transmission Date: 20140414
  Serious: Yes (Other)
  Sender: FDA-Public Use
  Company Number: PHHY2013JP051913

PATIENT
  Sex: Female

DRUGS (3)
  1. LOPRESSOR [Suspect]
     Indication: ARRHYTHMIA
     Dosage: 40 MG PER DAY
     Route: 048
  2. LOPRESSOR [Suspect]
     Dosage: 160 MG PER DAY
     Route: 048
  3. LOPRESSOR [Suspect]
     Dosage: 200 MG PER DAY
     Route: 048

REACTIONS (9)
  - Ventricular tachycardia [Unknown]
  - Ventricular fibrillation [Unknown]
  - Obstructed labour [Unknown]
  - Prolonged labour [Unknown]
  - Congestive cardiomyopathy [Unknown]
  - Cardiac failure [Unknown]
  - Ejection fraction decreased [Recovered/Resolved]
  - Arrhythmia [Unknown]
  - Maternal exposure during pregnancy [Unknown]
